FAERS Safety Report 17548622 (Version 2)
Quarter: 2020Q3

REPORT INFORMATION
  Report Type: Spontaneous
  Country: US (occurrence: US)
  Receive Date: 20200317
  Receipt Date: 20200728
  Transmission Date: 20201102
  Serious: Yes (Other)
  Sender: FDA-Public Use
  Company Number: US-ALLERGAN-1948174US

PATIENT

DRUGS (15)
  1. PERCOCET                           /00446701/ [Suspect]
     Active Substance: ACETAMINOPHEN\OXYCODONE HYDROCHLORIDE\OXYCODONE TEREPHTHALATE
     Indication: EXPOSURE DURING PREGNANCY
     Route: 064
  2. OXYCODONE [Suspect]
     Active Substance: OXYCODONE
     Indication: EXPOSURE DURING PREGNANCY
     Route: 064
  3. DURAGESIC [Suspect]
     Active Substance: FENTANYL
     Indication: EXPOSURE DURING PREGNANCY
     Route: 064
  4. ACTIQ [Suspect]
     Active Substance: FENTANYL CITRATE
     Indication: EXPOSURE DURING PREGNANCY
     Dosage: UNK
     Route: 064
  5. VICODIN [Suspect]
     Active Substance: ACETAMINOPHEN\HYDROCODONE BITARTRATE
     Indication: EXPOSURE DURING PREGNANCY
     Route: 064
  6. LORTAB [Suspect]
     Active Substance: ACETAMINOPHEN\HYDROCODONE BITARTRATE
     Indication: EXPOSURE DURING PREGNANCY
     Route: 064
  7. OPANA ER [Suspect]
     Active Substance: OXYMORPHONE HYDROCHLORIDE
     Indication: EXPOSURE DURING PREGNANCY
     Route: 064
  8. HYDROCODONE [Suspect]
     Active Substance: HYDROCODONE
     Indication: EXPOSURE DURING PREGNANCY
     Route: 064
  9. OXYMORPHONE [Suspect]
     Active Substance: OXYMORPHONE
     Indication: EXPOSURE DURING PREGNANCY
     Route: 064
  10. NORCO [Suspect]
     Active Substance: ACETAMINOPHEN\HYDROCODONE BITARTRATE
     Indication: EXPOSURE DURING PREGNANCY
     Dosage: UNK
     Route: 064
  11. KADIAN [Suspect]
     Active Substance: MORPHINE SULFATE
     Indication: EXPOSURE DURING PREGNANCY
     Dosage: UNK
     Route: 064
  12. FENTORA [Suspect]
     Active Substance: FENTANYL CITRATE
     Indication: EXPOSURE DURING PREGNANCY
     Route: 064
  13. PERCODAN [Suspect]
     Active Substance: ASPIRIN\OXYCODONE HYDROCHLORIDE
     Indication: EXPOSURE DURING PREGNANCY
     Route: 064
  14. OPANA [Suspect]
     Active Substance: OXYMORPHONE HYDROCHLORIDE
     Indication: EXPOSURE DURING PREGNANCY
     Route: 064
  15. HYDROMORPHONE [Suspect]
     Active Substance: HYDROMORPHONE
     Indication: EXPOSURE DURING PREGNANCY
     Route: 064

REACTIONS (4)
  - Pain [Unknown]
  - Drug dependence [Unknown]
  - Drug withdrawal syndrome neonatal [Unknown]
  - Pregnancy [Unknown]
